FAERS Safety Report 22586480 (Version 1)
Quarter: 2023Q2

REPORT INFORMATION
  Report Type: Spontaneous
  Country: US (occurrence: US)
  Receive Date: 20230611
  Receipt Date: 20230611
  Transmission Date: 20230722
  Serious: No
  Sender: FDA-Public Use
  Company Number: US-PERRIGO-22US013539

PATIENT
  Age: 67 Year
  Sex: Female
  Weight: 72.562 kg

DRUGS (6)
  1. DICLOFENAC SODIUM [Suspect]
     Active Substance: DICLOFENAC SODIUM
     Dosage: SMALL AMOUNT, SINGLE
     Route: 061
     Dates: start: 20221010, end: 20221010
  2. NALTREXONE [Concomitant]
     Active Substance: NALTREXONE
     Indication: Arthralgia
     Dosage: 3 MG, BID
     Route: 065
     Dates: start: 2019
  3. PREDNISOLONE ACETATE [Concomitant]
     Active Substance: PREDNISOLONE ACETATE
     Indication: Retinal vein occlusion
     Dosage: UNK
     Route: 065
     Dates: start: 2019
  4. PREDNISOLONE ACETATE [Concomitant]
     Active Substance: PREDNISOLONE ACETATE
     Indication: Eye inflammation
  5. XIIDRA [Concomitant]
     Active Substance: LIFITEGRAST
     Indication: Dry eye
     Dosage: UNK
     Route: 065
     Dates: start: 2019
  6. XIIDRA [Concomitant]
     Active Substance: LIFITEGRAST
     Indication: Eye inflammation

REACTIONS (2)
  - Headache [Recovered/Resolved]
  - Off label use [Recovered/Resolved]

NARRATIVE: CASE EVENT DATE: 20221010
